FAERS Safety Report 4921097-6 (Version None)
Quarter: 2006Q1

REPORT INFORMATION
  Report Type: 
  Country: None (occurrence: None)
  Receive Date: 20060223
  Receipt Date: 20060217
  Transmission Date: 20060701
  Serious: Yes (Hospitalization, Other)
  Sender: FDA-Public Use
  Company Number: PR-MERCK-0602USA04795

PATIENT
  Age: 51 Year
  Sex: Female
  Weight: 54 kg

DRUGS (2)
  1. VIOXX [Suspect]
     Indication: MYALGIA
     Route: 048
     Dates: start: 20020319, end: 20020430
  2. VIOXX [Suspect]
     Indication: ARTHRITIS
     Route: 048
     Dates: start: 20020319, end: 20020430

REACTIONS (8)
  - APHONIA [None]
  - ASTHENIA [None]
  - BLINDNESS [None]
  - CARDIAC DISORDER [None]
  - CHEST PAIN [None]
  - DEPRESSION [None]
  - INSOMNIA [None]
  - PULMONARY EMBOLISM [None]
